FAERS Safety Report 12193172 (Version 1)
Quarter: 2016Q1

REPORT INFORMATION
  Report Type: Spontaneous
  Country: JP (occurrence: JP)
  Receive Date: 20160319
  Receipt Date: 20160319
  Transmission Date: 20160526
  Serious: Yes (Hospitalization)
  Sender: FDA-Public Use
  Company Number: JP-AMGEN-JPNSP2015064180

PATIENT
  Age: 67 Year
  Sex: Male
  Weight: 50 kg

DRUGS (14)
  1. LASIX [Concomitant]
     Active Substance: FUROSEMIDE
     Indication: CHRONIC KIDNEY DISEASE
     Dosage: 40 MG, QD
     Route: 048
  2. ZADITEN [Concomitant]
     Active Substance: KETOTIFEN FUMARATE
     Dosage: 2 G, QD
     Route: 048
  3. PLETAAL [Concomitant]
     Active Substance: CILOSTAZOL
     Indication: CEREBRAL INFARCTION
     Dosage: 50 MG, BID
     Route: 048
  4. SODIUM BICARBONATE. [Concomitant]
     Active Substance: SODIUM BICARBONATE
     Indication: CHRONIC KIDNEY DISEASE
     Dosage: 1 G, QD
     Route: 048
  5. BAYASPIRIN [Concomitant]
     Active Substance: ASPIRIN
     Indication: CEREBRAL INFARCTION
     Dosage: 100 MG, QD
     Route: 048
  6. PRALIA [Suspect]
     Active Substance: DENOSUMAB
     Indication: OSTEOPOROSIS
     Dosage: 60 MG, UNK
     Route: 058
     Dates: start: 20150601
  7. CALTAN [Concomitant]
     Active Substance: CALCIUM CARBONATE
     Indication: CHRONIC KIDNEY DISEASE
     Dosage: 500 MG, TID
     Route: 048
  8. ADALAT [Concomitant]
     Active Substance: NIFEDIPINE
     Indication: CHRONIC KIDNEY DISEASE
     Dosage: 20 MG, BID
     Route: 048
  9. PURSENNID                          /00142207/ [Concomitant]
     Active Substance: SENNOSIDES A AND B
     Indication: CONSTIPATION
     Dosage: 12 MG, BID
     Route: 048
  10. PRALIA [Suspect]
     Active Substance: DENOSUMAB
     Indication: PUBIS FRACTURE
  11. CRESTOR [Concomitant]
     Active Substance: ROSUVASTATIN CALCIUM
     Indication: HYPERLIPIDAEMIA
     Dosage: 2.5 MG, QD
     Route: 048
  12. FEBURIC [Concomitant]
     Active Substance: FEBUXOSTAT
     Indication: CHRONIC KIDNEY DISEASE
     Dosage: 10 MG, QD
     Route: 048
  13. BASEN                              /01290601/ [Concomitant]
     Active Substance: VOGLIBOSE
     Indication: TYPE 2 DIABETES MELLITUS
     Dosage: 0.3 MG, TID
     Route: 048
  14. LANTUS [Concomitant]
     Active Substance: INSULIN GLARGINE
     Indication: TYPE 2 DIABETES MELLITUS
     Dosage: 10 DF, QD
     Route: 058

REACTIONS (2)
  - Blood phosphorus decreased [Recovered/Resolved]
  - Hypocalcaemia [Recovering/Resolving]

NARRATIVE: CASE EVENT DATE: 20150608
